FAERS Safety Report 23110463 (Version 2)
Quarter: 2023Q4

REPORT INFORMATION
  Report Type: Spontaneous
  Country: ES (occurrence: ES)
  Receive Date: 20231026
  Receipt Date: 20231219
  Transmission Date: 20240110
  Serious: Yes (Hospitalization)
  Sender: FDA-Public Use
  Company Number: ES-CELLTRION HEALTHCARE HUNGARY KFT-2023ES019680

PATIENT
  Age: 70 Year
  Sex: Male

DRUGS (10)
  1. LENALIDOMIDE [Suspect]
     Active Substance: LENALIDOMIDE
     Indication: Marginal zone lymphoma
     Dosage: 10 MG, QD FOR 12 CYCLES (ON DAYS 1 TO 21)
     Route: 048
     Dates: start: 20220722
  2. LENALIDOMIDE [Suspect]
     Active Substance: LENALIDOMIDE
     Dosage: 20 MG DAILY (ON DAYS 1 TO 21) FOR 12 CYCLES
     Route: 048
     Dates: start: 20220922
  3. LENALIDOMIDE [Suspect]
     Active Substance: LENALIDOMIDE
     Dosage: UNK
     Route: 065
     Dates: start: 20230125
  4. LENALIDOMIDE [Suspect]
     Active Substance: LENALIDOMIDE
     Dosage: UNK
     Route: 065
     Dates: start: 20230201
  5. LENALIDOMIDE [Suspect]
     Active Substance: LENALIDOMIDE
     Dosage: 15 MILLIGRAM QD (REDUCED TO 15 MG)
     Route: 048
  6. TAFASITAMAB [Suspect]
     Active Substance: TAFASITAMAB
     Indication: Marginal zone lymphoma
     Dosage: UNK
     Route: 065
     Dates: start: 20220922
  7. TAFASITAMAB [Suspect]
     Active Substance: TAFASITAMAB
     Dosage: UNK
     Route: 065
     Dates: start: 20230125
  8. RITUXIMAB [Suspect]
     Active Substance: RITUXIMAB
     Indication: Marginal zone lymphoma
     Dosage: 375 MILLIGRAM/SQ. METER, CYCLE (5 CYCLES)
     Route: 042
     Dates: start: 20220922
  9. RITUXIMAB [Suspect]
     Active Substance: RITUXIMAB
     Dosage: 645; INTRAVENOUS USE
     Route: 042
     Dates: start: 20230112
  10. RITUXIMAB [Suspect]
     Active Substance: RITUXIMAB
     Dosage: UNK (645)
     Route: 042
     Dates: start: 20230125

REACTIONS (2)
  - Dyspnoea [Recovered/Resolved]
  - Intentional product use issue [Unknown]

NARRATIVE: CASE EVENT DATE: 20230717
